FAERS Safety Report 6590153-1 (Version None)
Quarter: 2010Q1

REPORT INFORMATION
  Report Type: 
  Country: None (occurrence: None)
  Receive Date: 20100219
  Receipt Date: 20100217
  Transmission Date: 20100710
  Serious: Yes (Hospitalization)
  Sender: FDA-Public Use
  Company Number: IT-BRISTOL-MYERS SQUIBB COMPANY-14814784

PATIENT
  Age: 48 Year
  Sex: Female

DRUGS (3)
  1. IXABEPILONE [Suspect]
     Dosage: ROUTE :EV
     Route: 042
     Dates: start: 20080925, end: 20081202
  2. ALENDRONATE SODIUM [Concomitant]
     Indication: OSTEOPOROSIS
     Dates: start: 20071101
  3. SELEDIE [Concomitant]
     Indication: DEEP VEIN THROMBOSIS
     Dates: start: 20061101

REACTIONS (2)
  - URINARY RETENTION [None]
  - URINARY TRACT INFECTION [None]
